FAERS Safety Report 8516037-7 (Version None)
Quarter: 2012Q3

REPORT INFORMATION
  Report Type: 
  Country: None (occurrence: None)
  Receive Date: 20120717
  Receipt Date: 20120423
  Transmission Date: 20120928
  Serious: No
  Sender: FDA-Public Use
  Company Number: US-NOVEN-12US004519

PATIENT
  Sex: Male

DRUGS (9)
  1. SLEEPING PILL (NOT SPECIFIED) [Concomitant]
     Indication: SLEEP DISORDER
     Route: 048
  2. ANXIETY PILLS (NOT SPECIFIED) [Concomitant]
     Indication: ANXIETY
     Route: 048
  3. BLOOD PRESSURE MEDICINE (NOT SPECIFIED) [Concomitant]
     Indication: BLOOD PRESSURE
     Dosage: UNK
     Route: 048
  4. NEXIUM [Concomitant]
     Indication: GASTRIC DISORDER
     Dosage: UNK
     Route: 048
  5. FENTANYL [Suspect]
     Indication: PAIN
     Dosage: 50 MCG/HR
     Route: 062
     Dates: start: 20120418
  6. NEURONTIN [Concomitant]
     Dosage: UNK
     Route: 048
  7. FLEXERIL [Concomitant]
     Route: 048
  8. PROZAC [Concomitant]
     Route: 048
  9. PERCOCET [Concomitant]
     Indication: PAIN
     Dosage: 2 PILLS PER DAY
     Route: 048

REACTIONS (2)
  - DRUG ADMINISTRATION ERROR [None]
  - PRODUCT QUALITY ISSUE [None]
